FAERS Safety Report 6164586-1 (Version None)
Quarter: 2009Q2

REPORT INFORMATION
  Report Type: 
  Country: None (occurrence: None)
  Receive Date: 20090423
  Receipt Date: 20090415
  Transmission Date: 20091009
  Serious: Yes (Death, Hospitalization)
  Sender: FDA-Public Use
  Company Number: GB-ELI_LILLY_AND_COMPANY-GB200904002961

PATIENT
  Age: 64 Year
  Sex: Male
  Weight: 123 kg

DRUGS (10)
  1. BYETTA [Suspect]
     Indication: DIABETES MELLITUS
     Dosage: 10 UG, DAILY (1/D)
     Route: 030
     Dates: start: 20081107
  2. BYETTA [Suspect]
     Dosage: 10 UG, 2/D
     Route: 065
  3. ASPIRIN [Concomitant]
     Dosage: 75 MG, DAILY (1/D)
     Route: 065
  4. CIALIS [Concomitant]
     Dosage: 20 MG, UNKNOWN
     Route: 065
  5. GLICLAZIDE [Concomitant]
     Dosage: 30 MG, 3/D
     Route: 065
  6. METFORMIN HCL [Concomitant]
     Dosage: 500 MG, 4/D
     Route: 065
  7. MOMETASONE FUROATE [Concomitant]
     Dosage: 50 UG, 2/D
     Route: 065
  8. PERINDOPRIL [Concomitant]
     Dosage: 4 MG, DAILY (1/D)
     Route: 065
  9. SIMVASTATIN [Concomitant]
     Dosage: 40 MG, DAILY (1/D)
     Route: 065
  10. VARDENAFIL [Concomitant]
     Dosage: 20 MG, UNKNOWN
     Route: 065

REACTIONS (2)
  - DEATH [None]
  - VOMITING [None]
